FAERS Safety Report 9718609 (Version 1)
Quarter: 2013Q4

REPORT INFORMATION
  Report Type: Spontaneous
  Country: US (occurrence: US)
  Receive Date: 20131127
  Receipt Date: 20131127
  Transmission Date: 20140711
  Serious: No
  Sender: FDA-Public Use
  Company Number: US-ASTRAZENECA-2012SE91271

PATIENT
  Sex: Female
  Weight: 59.4 kg

DRUGS (10)
  1. CRESTOR [Suspect]
     Indication: BLOOD CHOLESTEROL INCREASED
     Route: 048
     Dates: start: 2012
  2. CRESTOR [Suspect]
     Indication: BLOOD CHOLESTEROL INCREASED
     Route: 048
     Dates: start: 201208
  3. SIMVASTATIN [Suspect]
     Route: 065
  4. ASPIRIN [Concomitant]
  5. VIT D3 [Concomitant]
  6. HYDROCODONE [Concomitant]
     Indication: INTERVERTEBRAL DISC DEGENERATION
  7. HYDROCODONE [Concomitant]
     Indication: BACK PAIN
  8. FISH OIL [Concomitant]
  9. PANTOPRAZOLE [Concomitant]
     Indication: GASTROOESOPHAGEAL REFLUX DISEASE
  10. METOPROLOL TARTRATE [Concomitant]
     Indication: HYPERTENSION

REACTIONS (5)
  - Back pain [Unknown]
  - Gait disturbance [Unknown]
  - Exercise tolerance decreased [Unknown]
  - Weight increased [Unknown]
  - Hepatic enzyme increased [Unknown]
